FAERS Safety Report 6071132-X (Version None)
Quarter: 2009Q1

REPORT INFORMATION
  Report Type: 
  Country: None (occurrence: None)
  Receive Date: 20090209
  Receipt Date: 20090206
  Transmission Date: 20090719
  Serious: Yes (Hospitalization, Other)
  Sender: FDA-Public Use
  Company Number: FR-RB-009296-09

PATIENT
  Sex: Female

DRUGS (1)
  1. SUBUTEX [Suspect]
     Indication: DRUG THERAPY

REACTIONS (9)
  - ANXIETY [None]
  - DEPRESSION [None]
  - DRUG WITHDRAWAL SYNDROME [None]
  - HOSPITALISATION [None]
  - INJECTION SITE INJURY [None]
  - LIVER DISORDER [None]
  - OVERDOSE [None]
  - RESPIRATORY DISORDER [None]
  - SUICIDAL IDEATION [None]
